FAERS Safety Report 24025857 (Version 2)
Quarter: 2024Q2

REPORT INFORMATION
  Report Type: Report from Study
  Country: CN (occurrence: CN)
  Receive Date: 20240628
  Receipt Date: 20240628
  Transmission Date: 20240716
  Serious: No
  Sender: FDA-Public Use
  Company Number: CN-ROCHE-3134180

PATIENT
  Age: 66 Year
  Sex: Female
  Weight: 63.0 kg

DRUGS (21)
  1. ALECTINIB [Suspect]
     Active Substance: ALECTINIB
     Indication: Non-small cell lung cancer metastatic
     Route: 048
     Dates: start: 20211122
  2. ALECTINIB [Suspect]
     Active Substance: ALECTINIB
     Route: 065
     Dates: start: 20210313
  3. METOCLOPRAMIDE [Concomitant]
     Active Substance: METOCLOPRAMIDE
     Indication: Spinal osteoarthritis
     Route: 048
     Dates: start: 20211122
  4. INOSINE AND SODIUM CHLORIDE [Concomitant]
     Route: 050
     Dates: start: 20220415, end: 20220421
  5. GLUTATHIONE [Concomitant]
     Active Substance: GLUTATHIONE
     Route: 050
     Dates: start: 20220417, end: 20220421
  6. HERBALS [Concomitant]
     Active Substance: HERBALS
     Indication: Lacunar infarction
     Route: 050
     Dates: start: 20220622, end: 20220624
  7. HERBALS [Concomitant]
     Active Substance: HERBALS
     Route: 050
     Dates: start: 20220829, end: 20220901
  8. PAMIDRONATE DISODIUM AND GLUCOSE [Concomitant]
     Route: 050
     Dates: start: 20220622, end: 20220623
  9. PAMIDRONATE DISODIUM AND GLUCOSE [Concomitant]
     Route: 050
     Dates: start: 20220829, end: 20220930
  10. PAMIDRONATE DISODIUM AND GLUCOSE [Concomitant]
     Route: 050
     Dates: start: 20221030, end: 20221101
  11. PAMIDRONATE DISODIUM AND GLUCOSE [Concomitant]
     Route: 042
     Dates: start: 20230108, end: 20230109
  12. MANNATIDE [Concomitant]
     Route: 050
     Dates: start: 20220622, end: 20220624
  13. MANNATIDE [Concomitant]
     Route: 050
     Dates: start: 20221030, end: 20221101
  14. MANNATIDE [Concomitant]
     Route: 050
     Dates: start: 20220829, end: 20220901
  15. GLUTATHIONE [Concomitant]
     Active Substance: GLUTATHIONE
     Route: 050
     Dates: start: 20220830, end: 20220901
  16. GLUTATHIONE [Concomitant]
     Active Substance: GLUTATHIONE
     Route: 050
     Dates: start: 20221030, end: 20221101
  17. GLUTATHIONE [Concomitant]
     Active Substance: GLUTATHIONE
     Route: 050
     Dates: start: 20220417, end: 20220421
  18. HERBALS [Concomitant]
     Active Substance: HERBALS
     Route: 050
     Dates: start: 20220415, end: 20220417
  19. MAGNESIUM ISOGLYCYRRHIZINATE [Concomitant]
     Active Substance: MAGNESIUM ISOGLYCYRRHIZINATE
     Route: 050
     Dates: start: 20220417, end: 20220421
  20. BIFENDATE [Concomitant]
     Active Substance: BIFENDATE
     Route: 048
     Dates: start: 20220421, end: 20220525
  21. SILIBININ [Concomitant]
     Active Substance: SILIBININ
     Route: 048
     Dates: start: 20220421, end: 20220525

REACTIONS (2)
  - Platelet count decreased [Recovered/Resolved]
  - Sinus bradycardia [Recovered/Resolved]

NARRATIVE: CASE EVENT DATE: 20220414
